FAERS Safety Report 18524622 (Version 1)
Quarter: 2020Q4

REPORT INFORMATION
  Report Type: Spontaneous
  Country: US (occurrence: US)
  Receive Date: 20201119
  Receipt Date: 20201119
  Transmission Date: 20210114
  Serious: No
  Sender: FDA-Public Use
  Company Number: US-PFIZER INC-2020455149

PATIENT
  Age: 61 Year
  Sex: Female
  Weight: 45.36 kg

DRUGS (2)
  1. CHANTIX [Suspect]
     Active Substance: VARENICLINE TARTRATE
     Dosage: 1 MG, UNK
     Dates: start: 202011
  2. CHANTIX [Suspect]
     Active Substance: VARENICLINE TARTRATE
     Indication: SMOKING CESSATION THERAPY
     Dosage: 0.5 MG, UNK
     Dates: start: 202011

REACTIONS (3)
  - Nasopharyngitis [Recovering/Resolving]
  - Influenza [Recovering/Resolving]
  - Cough [Unknown]

NARRATIVE: CASE EVENT DATE: 202011
